FAERS Safety Report 7663656-6 (Version None)
Quarter: 2011Q3

REPORT INFORMATION
  Report Type: 
  Country: None (occurrence: None)
  Receive Date: 20110805
  Receipt Date: 20100816
  Transmission Date: 20111222
  Serious: No
  Sender: FDA-Public Use
  Company Number: US-ABBOTT-10P-163-0664685-00

PATIENT
  Sex: Female
  Weight: 77.18 kg

DRUGS (2)
  1. NIASPAN [Suspect]
     Indication: BLOOD CHOLESTEROL
  2. AMOXICILLIN AND CLAVULANATE POTASSIUM [Suspect]
     Indication: CYSTITIS
     Dosage: 875/125 MG
     Dates: start: 20100812

REACTIONS (3)
  - CYSTITIS [None]
  - FLUSHING [None]
  - PRURITUS [None]
